FAERS Safety Report 16442264 (Version 1)
Quarter: 2019Q2

REPORT INFORMATION
  Report Type: Report from Study
  Country: None (occurrence: US)
  Receive Date: 20190617
  Receipt Date: 20190617
  Transmission Date: 20190711
  Serious: No
  Sender: FDA-Public Use
  Company Number: US-US WORLDMEDS, LLC-USW201903-000445

PATIENT
  Age: 85 Year
  Sex: Male
  Weight: 89.35 kg

DRUGS (7)
  1. ENTACAPONE. [Concomitant]
     Active Substance: ENTACAPONE
  2. RIMADYL [Concomitant]
     Active Substance: CARPROFEN
  3. ACETYLSALICYLIC ACID [Concomitant]
     Active Substance: ASPIRIN
  4. SIMVASTATIN. [Concomitant]
     Active Substance: SIMVASTATIN
  5. RYTARY [Concomitant]
     Active Substance: CARBIDOPA\LEVODOPA
  6. APOKYN [Suspect]
     Active Substance: APOMORPHINE HYDROCHLORIDE
     Indication: PARKINSON^S DISEASE
     Route: 058
     Dates: start: 20190228
  7. FLOMAX [Concomitant]
     Active Substance: TAMSULOSIN HYDROCHLORIDE

REACTIONS (5)
  - Asthenia [Recovered/Resolved]
  - Dyskinesia [Recovered/Resolved]
  - Yawning [Recovered/Resolved]
  - Pain in extremity [Recovered/Resolved]
  - Vision blurred [Recovered/Resolved]

NARRATIVE: CASE EVENT DATE: 20190228
